FAERS Safety Report 5339031-6 (Version None)
Quarter: 2007Q2

REPORT INFORMATION
  Report Type: 
  Country: None (occurrence: None)
  Receive Date: 20070530
  Receipt Date: 20070520
  Transmission Date: 20071010
  Serious: Yes (Other)
  Sender: FDA-Public Use
  Company Number: NL-PFIZER INC-2007039028

PATIENT
  Sex: Female
  Weight: 60 kg

DRUGS (3)
  1. LIPITOR [Suspect]
     Dosage: DAILY DOSE:10MG
     Route: 048
  2. RAMIPRIL [Concomitant]
     Route: 048
  3. HYDROCHLOROTHIAZIDE [Concomitant]
     Route: 048

REACTIONS (4)
  - ATROPHY [None]
  - DYSARTHRIA [None]
  - DYSPHAGIA [None]
  - PARESIS [None]
